FAERS Safety Report 8926190 (Version 1)
Quarter: 2012Q4

REPORT INFORMATION
  Report Type: Report from Study
  Country: US (occurrence: US)
  Receive Date: 20121126
  Receipt Date: 20121126
  Transmission Date: 20130627
  Serious: Yes (Death)
  Sender: FDA-Public Use
  Company Number: US-ABBOTT-12P-163-1011844-00

PATIENT
  Age: 89 Year
  Sex: Male

DRUGS (2)
  1. ZEMPLAR [Suspect]
     Indication: HYPERPARATHYROIDISM SECONDARY
  2. ZEMPLAR [Suspect]
     Indication: RENAL FAILURE CHRONIC

REACTIONS (1)
  - Death [Fatal]
